FAERS Safety Report 7915440-3 (Version None)
Quarter: 2011Q4

REPORT INFORMATION
  Report Type: 
  Country: None (occurrence: None)
  Receive Date: 20111115
  Receipt Date: 20111107
  Transmission Date: 20120403
  Serious: Yes (Other)
  Sender: FDA-Public Use
  Company Number: PHHY2011US098280

PATIENT
  Age: 61 Year
  Sex: Female

DRUGS (3)
  1. VENLAFAXINE [Interacting]
     Dosage: 75 MG, UNK
  2. VENLAFAXINE [Suspect]
     Indication: MAJOR DEPRESSION
     Dosage: 37.5 MG, UNK
  3. TACROLIMUS [Interacting]
     Indication: IMMUNOSUPPRESSION

REACTIONS (8)
  - ATAXIA [None]
  - SEROTONIN SYNDROME [None]
  - DIARRHOEA [None]
  - DYSARTHRIA [None]
  - HYPERHIDROSIS [None]
  - ENCEPHALOPATHY [None]
  - DRUG INTERACTION [None]
  - MUSCLE SPASTICITY [None]
